FAERS Safety Report 13997012 (Version 4)
Quarter: 2017Q4

REPORT INFORMATION
  Report Type: Spontaneous
  Country: GB (occurrence: GB)
  Receive Date: 20170921
  Receipt Date: 20171116
  Transmission Date: 20180321
  Serious: Yes (Hospitalization, Other)
  Sender: FDA-Public Use
  Company Number: GB-PFIZER INC-2017400930

PATIENT
  Age: 78 Year

DRUGS (29)
  1. COLESTYRAMINE [Concomitant]
     Active Substance: CHOLESTYRAMINE
     Dosage: 4 G, 3X/DAY
  2. DULOXETINE. [Concomitant]
     Active Substance: DULOXETINE
     Dosage: 60 MG, 1X/DAY
  3. MEBEVERINE [Concomitant]
     Active Substance: MEBEVERINE
     Dosage: 135 MG, 3X/DAY
  4. SIMVASTATIN. [Concomitant]
     Active Substance: SIMVASTATIN
     Dosage: 40 MG, 1X/DAY (NIGHT)
  5. VENTOLIN [Concomitant]
     Active Substance: ALBUTEROL SULFATE
     Dosage: 200 UG, AS NEEDED
     Route: 055
  6. LIDOCAINE. [Concomitant]
     Active Substance: LIDOCAINE
     Dosage: 2 DF, 1X/DAY (IN EACH KNEE)
  7. EPILIM [Concomitant]
     Active Substance: VALPROATE SODIUM
     Dosage: 2 DF, 2X/DAY
  8. ALFACALCIDOL [Concomitant]
     Active Substance: ALFACALCIDOL
     Dosage: 1.25 UG, 1X/DAY
  9. DIPYRIDAMOLE. [Concomitant]
     Active Substance: DIPYRIDAMOLE
     Dosage: 200 MG, 2X/DAY
  10. LACRI-LUBE [Concomitant]
     Dosage: AS DIRECTED
     Route: 047
  11. FUROSEMIDE. [Concomitant]
     Active Substance: FUROSEMIDE
     Dosage: 40 MG, 2X/DAY (MORNING AND LUNCHTIME)
  12. VAGIFEM [Concomitant]
     Active Substance: ESTRADIOL
     Dosage: 10 UG, 2X/WEEK (2.8571 UG DAILY)
     Route: 067
  13. LACTULOSE. [Concomitant]
     Active Substance: LACTULOSE
     Indication: CROHN^S DISEASE
     Dosage: 15 ML, 2X/DAY (3.1 - 3.7G/5ML)
  14. ACLIDINIUM BROMIDE. [Concomitant]
     Active Substance: ACLIDINIUM BROMIDE
     Dosage: 375 UG, 2X/DAY
     Route: 055
  15. COCODAMOL [Concomitant]
     Active Substance: ACETAMINOPHEN\CODEINE PHOSPHATE
     Dosage: UNK UNK, 4X/DAY
  16. ESTRADIOL. [Suspect]
     Active Substance: ESTRADIOL
     Dosage: UNK
  17. GABAPENTIN. [Concomitant]
     Active Substance: GABAPENTIN
     Dosage: 300 MG, 3X/DAY
  18. OMEPRAZOLE. [Concomitant]
     Active Substance: OMEPRAZOLE
     Dosage: 20 MG, 2X/DAY
  19. ADCAL D3 [Concomitant]
     Active Substance: CALCIUM CARBONATE\CHOLECALCIFEROL
     Dosage: 1 DF, 2X/DAY
  20. ASPIRIN. [Concomitant]
     Active Substance: ASPIRIN
     Dosage: 75 MG, 1X/DAY
  21. FOLIC ACID. [Concomitant]
     Active Substance: FOLIC ACID
     Dosage: 5 MG, 1X/DAY
  22. LOPERAMIDE [Concomitant]
     Active Substance: LOPERAMIDE
     Indication: CROHN^S DISEASE
     Dosage: 2 MG, UNK (AS DIRECTED)
  23. NITRAZEPAM [Concomitant]
     Active Substance: NITRAZEPAM
     Dosage: 5 MG, 1X/DAY (NIGHT)
  24. PREDNISOLONE. [Concomitant]
     Active Substance: PREDNISOLONE
     Dosage: 2.5 MG, 1X/DAY (NIGHT)
  25. XYLOPROCT [Concomitant]
     Dosage: 1 DF, AS NEEDED (5%/0.275%)
  26. EPADERM [Concomitant]
     Active Substance: MINERAL OIL\PETROLATUM\WAX, EMULSIFYING
     Dosage: USE AS DIRECTED
  27. ALFACALCIDOL [Concomitant]
     Active Substance: ALFACALCIDOL
     Dosage: 1 UG, 1X/DAY
  28. LACTULOSE. [Concomitant]
     Active Substance: LACTULOSE
     Dosage: 15 MG, AS NEEDED
  29. IBUPROFEN. [Concomitant]
     Active Substance: IBUPROFEN
     Dosage: 1 DF, 3X/DAY (APPLY)

REACTIONS (1)
  - Pulmonary embolism [Unknown]
